FAERS Safety Report 23820255 (Version 7)
Quarter: 2025Q1

REPORT INFORMATION
  Report Type: Spontaneous
  Country: US (occurrence: US)
  Receive Date: 20240506
  Receipt Date: 20250103
  Transmission Date: 20250409
  Serious: Yes (Hospitalization, Other)
  Sender: PFIZER
  Company Number: US-PFIZER INC-PV202400057681

PATIENT
  Age: 73 Year
  Sex: Male
  Weight: 58.5 kg

DRUGS (2)
  1. BOSULIF [Suspect]
     Active Substance: BOSUTINIB MONOHYDRATE
     Indication: Chronic myeloid leukaemia
     Route: 048
  2. BOSULIF [Suspect]
     Active Substance: BOSUTINIB MONOHYDRATE
     Dosage: 4 TABLET ORALLY DAILY. TAKE WITH FOOD
     Route: 048

REACTIONS (2)
  - Memory impairment [Unknown]
  - Myocardial ischaemia [Unknown]
